FAERS Safety Report 4315095-3 (Version None)
Quarter: 2004Q1

REPORT INFORMATION
  Report Type: 
  Country: None (occurrence: None)
  Receive Date: 20040310
  Receipt Date: 20040304
  Transmission Date: 20041129
  Serious: Yes (Other)
  Sender: FDA-Public Use
  Company Number: US-ROCHE-360736

PATIENT
  Age: 50 Year
  Sex: Male

DRUGS (2)
  1. PEG-INTERFERON A-2A (RO 25-8310) [Suspect]
     Indication: HEPATITIS C
     Route: 065
  2. RIBAVIRIN [Suspect]
     Indication: HEPATITIS C
     Route: 065

REACTIONS (6)
  - ANAEMIA [None]
  - FATIGUE [None]
  - HEPATOSPLENOMEGALY [None]
  - LYMPHOMA [None]
  - RESPIRATORY DISTRESS [None]
  - SYNCOPE [None]
